FAERS Safety Report 21388368 (Version 13)
Quarter: 2023Q1

REPORT INFORMATION
  Report Type: Report from Study
  Country: CA (occurrence: CA)
  Receive Date: 20220928
  Receipt Date: 20230130
  Transmission Date: 20230418
  Serious: Yes (Hospitalization, Other)
  Sender: FDA-Public Use
  Company Number: CA-GILEAD-2022-0597866

PATIENT
  Age: 59 Year
  Sex: Female

DRUGS (31)
  1. SACITUZUMAB GOVITECAN-HZIY [Suspect]
     Active Substance: SACITUZUMAB GOVITECAN-HZIY
     Indication: Triple negative breast cancer
     Dosage: 1040 MG
     Route: 042
     Dates: start: 20220907, end: 20220914
  2. SACITUZUMAB GOVITECAN-HZIY [Suspect]
     Active Substance: SACITUZUMAB GOVITECAN-HZIY
     Dosage: UNK DOSE REDUCTION
     Route: 042
  3. SACITUZUMAB GOVITECAN-HZIY [Suspect]
     Active Substance: SACITUZUMAB GOVITECAN-HZIY
     Dosage: 785 MG
     Route: 042
  4. SACITUZUMAB GOVITECAN-HZIY [Suspect]
     Active Substance: SACITUZUMAB GOVITECAN-HZIY
     Dosage: 785 MG
     Route: 042
     Dates: start: 20220907
  5. SACITUZUMAB GOVITECAN-HZIY [Suspect]
     Active Substance: SACITUZUMAB GOVITECAN-HZIY
     Dosage: 785 MG
     Route: 042
     Dates: start: 20220907
  6. SACITUZUMAB GOVITECAN-HZIY [Suspect]
     Active Substance: SACITUZUMAB GOVITECAN-HZIY
     Dosage: 785 MG UNK CYCLE D1/D8
     Route: 042
     Dates: start: 20221103, end: 20221110
  7. SACITUZUMAB GOVITECAN-HZIY [Suspect]
     Active Substance: SACITUZUMAB GOVITECAN-HZIY
     Dosage: 523 MG (DECREASE TO 5MG/KG) UNK CYCLE D1
     Route: 042
     Dates: start: 20221201
  8. SACITUZUMAB GOVITECAN-HZIY [Suspect]
     Active Substance: SACITUZUMAB GOVITECAN-HZIY
     Dosage: UNK
     Route: 042
     Dates: start: 20221212
  9. SACITUZUMAB GOVITECAN-HZIY [Suspect]
     Active Substance: SACITUZUMAB GOVITECAN-HZIY
     Dosage: UNK, D1 AND D8 (DOES LATE)
     Route: 042
     Dates: start: 20230117, end: 20230125
  10. DEXAMETHASONE [Concomitant]
     Active Substance: DEXAMETHASONE
     Dosage: UNK
  11. DEXAMETHASONE [Concomitant]
     Active Substance: DEXAMETHASONE
     Dosage: 8 MG (PRE-MEDICATION TO TRODELVY)
  12. DEXAMETHASONE [Concomitant]
     Active Substance: DEXAMETHASONE
     Dosage: PO (PRE-MEDICATION PRIOR TO TRODELVY)
  13. DEXAMETHASONE [Concomitant]
     Active Substance: DEXAMETHASONE
     Dosage: PO (PRE-MEDICATION PRIOR TO TRODELVY)
  14. ONDANSETRON [Concomitant]
     Active Substance: ONDANSETRON
     Dosage: UNK
  15. ONDANSETRON [Concomitant]
     Active Substance: ONDANSETRON
     Dosage: 8 MG (PRE-MEDICATION TO TRODELVY)
  16. ONDANSETRON [Concomitant]
     Active Substance: ONDANSETRON
     Dosage: PO (PRE-MEDICATION PRIOR TO TRODELVY)
  17. ONDANSETRON [Concomitant]
     Active Substance: ONDANSETRON
     Dosage: PO (PRE-MEDICATION PRIOR TO TRODELVY)
  18. ACETAMINOPHEN [Concomitant]
     Active Substance: ACETAMINOPHEN
     Dosage: UNK
  19. ACETAMINOPHEN [Concomitant]
     Active Substance: ACETAMINOPHEN
     Dosage: 650 MG (PRE-MEDICATION TO TRODELVY)
  20. RANITIDINE [Concomitant]
     Active Substance: RANITIDINE
     Dosage: UNK
  21. RANITIDINE [Concomitant]
     Active Substance: RANITIDINE
     Dosage: PO (PRE-MEDICATION PRIOR TO TRODELVY)
  22. RANITIDINE [Concomitant]
     Active Substance: RANITIDINE
     Dosage: PO (PRE-MEDICATION PRIOR TO TRODELVY)
  23. DIPHENHYDRAMINE [Concomitant]
     Active Substance: DIPHENHYDRAMINE
     Dosage: UNK
  24. DIPHENHYDRAMINE [Concomitant]
     Active Substance: DIPHENHYDRAMINE
     Dosage: 50 MG (PRE-MEDICATION TO TRODELVY)
  25. HYDROCORTISONE SODIUM SUCCINATE [Concomitant]
     Active Substance: HYDROCORTISONE SODIUM SUCCINATE
     Dosage: UNK
  26. HYDROCORTISONE SODIUM SUCCINATE [Concomitant]
     Active Substance: HYDROCORTISONE SODIUM SUCCINATE
     Dosage: 100 MG IV (PRE-MEDICATION FOR FLUSHING, RASH, OR URTICARIA)
  27. ALBUTEROL [Concomitant]
     Active Substance: ALBUTEROL
     Dosage: UNK
  28. ALBUTEROL [Concomitant]
     Active Substance: ALBUTEROL
     Dosage: 2 PUFFS EVERY 4-6 HOURS VIA SPACER PRN FOR DYSPNEA, WHEEZING
  29. METOCLOPRAMIDE [Concomitant]
     Active Substance: METOCLOPRAMIDE
     Dosage: PO (PRE-MEDICATION PRIOR TO TRODELVY)
  30. METOCLOPRAMIDE [Concomitant]
     Active Substance: METOCLOPRAMIDE
     Dosage: PO (PRE-MEDICATION PRIOR TO TRODELVY)
  31. METOCLOPRAMIDE [Concomitant]
     Active Substance: METOCLOPRAMIDE
     Dosage: PO (PRE-MEDICATION PRIOR TO TRODELVY)

REACTIONS (28)
  - Pyrexia [Recovered/Resolved]
  - Hyponatraemia [Recovered/Resolved]
  - Neutropenia [Unknown]
  - Neutropenia [Unknown]
  - Febrile neutropenia [Unknown]
  - Neutrophil count decreased [Recovered/Resolved]
  - Diarrhoea [Recovered/Resolved]
  - Diarrhoea [Unknown]
  - Frequent bowel movements [Not Recovered/Not Resolved]
  - Faeces soft [Not Recovered/Not Resolved]
  - Weight increased [Unknown]
  - Weight fluctuation [Unknown]
  - Hyponatraemia [Unknown]
  - Abdominal pain upper [Not Recovered/Not Resolved]
  - Headache [Not Recovered/Not Resolved]
  - Weight decreased [Not Recovered/Not Resolved]
  - Nausea [Unknown]
  - Dehydration [Unknown]
  - Vomiting [Unknown]
  - Poor venous access [Recovered/Resolved]
  - Arthralgia [Not Recovered/Not Resolved]
  - Paraesthesia [Recovered/Resolved]
  - Inappropriate schedule of product administration [Unknown]
  - Off label use [Not Recovered/Not Resolved]
  - Overdose [Recovered/Resolved]
  - Dose calculation error [Recovered/Resolved]
  - Eastern Cooperative Oncology Group performance status abnormal [Unknown]
  - Inappropriate schedule of product administration [Unknown]

NARRATIVE: CASE EVENT DATE: 20220101
